FAERS Safety Report 15211637 (Version 1)
Quarter: 2018Q3

REPORT INFORMATION
  Report Type: Spontaneous
  Country: US (occurrence: US)
  Receive Date: 20180702
  Receipt Date: 20180702
  Transmission Date: 20181010
  Serious: Yes (Hospitalization, Other)
  Sender: FDA-Public Use
  Company Number: None

PATIENT
  Sex: Female
  Weight: 63 kg

DRUGS (2)
  1. FENTANYL. [Suspect]
     Active Substance: FENTANYL
     Indication: COMPLEX REGIONAL PAIN SYNDROME
     Dosage: ?          OTHER FREQUENCY:EVERY 48 HOURS;?
     Route: 062
     Dates: start: 20120503, end: 20150330
  2. FENTANYL. [Concomitant]
     Active Substance: FENTANYL
     Dates: start: 20120503, end: 20150330

REACTIONS (4)
  - Somnolence [None]
  - Depression [None]
  - Suicidal ideation [None]
  - Heart rate increased [None]
